FAERS Safety Report 5586460-1 (Version None)
Quarter: 2008Q1

REPORT INFORMATION
  Report Type: 
  Country: None (occurrence: None)
  Receive Date: 20080108
  Receipt Date: 20080108
  Transmission Date: 20080703
  Serious: Yes (Other)
  Sender: FDA-Public Use
  Company Number: None

PATIENT
  Age: 37 Year
  Sex: Female
  Weight: 54.4316 kg

DRUGS (1)
  1. ALDARA [Suspect]
     Indication: BASAL CELL CARCINOMA
     Dosage: SUPERFICIAL APPLICATION 5 TIMES WEEKLY
     Dates: start: 20071203, end: 20080103

REACTIONS (3)
  - APPLICATION SITE INFECTION [None]
  - CRYING [None]
  - LYMPHADENOPATHY [None]
